FAERS Safety Report 6415270-8 (Version None)
Quarter: 2009Q4

REPORT INFORMATION
  Report Type: 
  Country: None (occurrence: None)
  Receive Date: 20091027
  Receipt Date: 20091014
  Transmission Date: 20100525
  Serious: Yes (Hospitalization)
  Sender: FDA-Public Use
  Company Number: NL-ELI_LILLY_AND_COMPANY-NL200909006010

PATIENT
  Sex: Female
  Weight: 89.8 kg

DRUGS (18)
  1. PEMETREXED [Suspect]
     Indication: NON-SMALL CELL LUNG CANCER
     Dosage: 500 MG/M2, ON DAY1 EVERY 21 DAYS
     Route: 042
     Dates: start: 20090916
  2. CISPLATIN [Suspect]
     Indication: NON-SMALL CELL LUNG CANCER
     Dosage: 75 MG/M2, ON DAY 1 EVERY 21 DAYS
     Route: 042
     Dates: start: 20090916
  3. FOLIC ACID [Concomitant]
     Indication: PROPHYLAXIS
     Dates: start: 20090909
  4. VIT B12 [Concomitant]
     Indication: PROPHYLAXIS
     Dates: start: 20090825
  5. DEXAMETHASONE [Concomitant]
     Indication: PROPHYLAXIS
     Dates: start: 20090915, end: 20090919
  6. OSCAL /00108001/ [Concomitant]
     Indication: ISCHAEMIC HEART DISEASE PROPHYLAXIS
     Dates: start: 20050501
  7. SELOKEEN /00376902/ [Concomitant]
     Indication: HYPERTENSION
     Dates: start: 20050501
  8. LIPITOR [Concomitant]
     Indication: HYPERCHOLESTEROLAEMIA
     Dates: start: 20050501
  9. METFORMIN HCL [Concomitant]
     Indication: DIABETES MELLITUS
     Dates: start: 20050501
  10. COZAAR [Concomitant]
     Indication: HYPERTENSION
     Dates: start: 20050501
  11. OXYCONTIN [Concomitant]
     Indication: PAIN IN EXTREMITY
     Dates: start: 20090801
  12. MOVICOLON [Concomitant]
     Indication: CONSTIPATION PROPHYLAXIS
     Dates: start: 20090802
  13. PANTOPRAZOLE SODIUM [Concomitant]
     Indication: PROPHYLAXIS
     Dates: start: 20090701
  14. THYRAX [Concomitant]
     Indication: HYPOTHYROIDISM
     Dates: start: 20070101
  15. SPIRIVA [Concomitant]
     Indication: DYSPNOEA
     Dates: start: 20090813
  16. ENEMOL [Concomitant]
     Indication: PROPHYLAXIS OF NAUSEA AND VOMITING
     Dates: start: 20090916, end: 20090918
  17. PRIMPERAN /00041901/ [Concomitant]
     Indication: PROPHYLAXIS OF NAUSEA AND VOMITING
     Dates: start: 20090916
  18. FUROSEMIDE [Concomitant]
     Indication: HYPERTENSION
     Dates: start: 20050501

REACTIONS (1)
  - C-REACTIVE PROTEIN INCREASED [None]
